FAERS Safety Report 7920041 (Version 6)
Quarter: 2023Q4

REPORT INFORMATION
  Report Type: Spontaneous
  Country: US (occurrence: US)
  Receive Date: 20110429
  Receipt Date: 20231202
  Transmission Date: 20240109
  Serious: Yes (Hospitalization)
  Sender: FDA-Public Use
  Company Number: US-BAYER-2011-032940

PATIENT
  Age: 35 Year
  Sex: Female
  Weight: 84 kg

DRUGS (3)
  1. YASMIN [Suspect]
     Active Substance: DROSPIRENONE\ETHINYL ESTRADIOL
     Indication: Polycystic ovaries
     Dosage: UNK
     Dates: start: 2008, end: 2009
  2. OCELLA [Suspect]
     Active Substance: DROSPIRENONE\ETHINYL ESTRADIOL
     Indication: Polycystic ovaries
     Dosage: UNK
     Dates: start: 2008, end: 2009
  3. PROVERA [Concomitant]
     Active Substance: MEDROXYPROGESTERONE ACETATE
     Dosage: 10 MG, UNK
     Dates: start: 1996

REACTIONS (5)
  - Deep vein thrombosis [None]
  - Pain [None]
  - Panic attack [None]
  - Anxiety [None]
  - Mental disorder [None]

NARRATIVE: CASE EVENT DATE: 20090401
